FAERS Safety Report 22823594 (Version 3)
Quarter: 2024Q1

REPORT INFORMATION
  Report Type: Spontaneous
  Country: JP (occurrence: JP)
  Receive Date: 20230815
  Receipt Date: 20240130
  Transmission Date: 20240409
  Serious: Yes (Hospitalization, Other)
  Sender: FDA-Public Use
  Company Number: JP-MSD-M2023-32056

PATIENT
  Age: 82 Year
  Sex: Male

DRUGS (1)
  1. KEYTRUDA [Suspect]
     Active Substance: PEMBROLIZUMAB
     Indication: Transitional cell cancer of the renal pelvis and ureter
     Dosage: 200 MILLIGRAM, Q3W
     Route: 041
     Dates: start: 202207, end: 20230714

REACTIONS (6)
  - Diabetes mellitus [Unknown]
  - Cardiac failure [Unknown]
  - Immune-mediated hypothyroidism [Unknown]
  - Enterocolitis [Unknown]
  - Hepatic failure [Recovering/Resolving]
  - Cytomegalovirus test positive [Unknown]

NARRATIVE: CASE EVENT DATE: 20230801
